FAERS Safety Report 4887803-4 (Version None)
Quarter: 2005Q4

REPORT INFORMATION
  Report Type: 
  Country: None (occurrence: None)
  Receive Date: 20051221
  Receipt Date: 20050926
  Transmission Date: 20060501
  Serious: No
  Sender: FDA-Public Use
  Company Number: US-YAMANOUCHI-YPA20050293

PATIENT
  Age: 68 Year
  Sex: Female

DRUGS (7)
  1. VESICARE [Suspect]
     Indication: HYPERTONIC BLADDER
     Dosage: 5 MG, QD, PO
     Route: 048
     Dates: start: 20050401
  2. PREMARIN [Concomitant]
  3. HYDROXYZINE [Concomitant]
  4. ACTONEL [Concomitant]
  5. MULTIVITAMIN ^LAPPE^ [Concomitant]
  6. GLUCOSAMINE [Concomitant]
  7. CALCIUM GLUCONATE [Concomitant]

REACTIONS (1)
  - MUSCLE SPASMS [None]
